FAERS Safety Report 7729815-9 (Version None)
Quarter: 2011Q3

REPORT INFORMATION
  Report Type: 
  Country: None (occurrence: None)
  Receive Date: 20110906
  Receipt Date: 20110824
  Transmission Date: 20111222
  Serious: Yes (Life-Threatening, Hospitalization)
  Sender: FDA-Public Use
  Company Number: CA-ROCHE-779283

PATIENT
  Sex: Female
  Weight: 86.2 kg

DRUGS (12)
  1. TOCILIZUMAB [Suspect]
     Indication: RHEUMATOID ARTHRITIS
     Route: 042
     Dates: start: 20090501
  2. LIPITOR [Concomitant]
  3. MICARDIS [Concomitant]
     Dosage: DOSE:80/12.5 DAILY.
     Route: 054
  4. TOCILIZUMAB [Suspect]
     Route: 042
     Dates: start: 20101118, end: 20101118
  5. TOCILIZUMAB [Suspect]
     Route: 042
     Dates: end: 20110309
  6. ASPIRIN [Concomitant]
     Route: 048
  7. ARAVA [Concomitant]
  8. RABEPRAZOLE SODIUM [Concomitant]
  9. BISOPROLOL FUMARATE [Concomitant]
  10. ACTONEL [Concomitant]
  11. TOCILIZUMAB [Suspect]
     Route: 042
     Dates: start: 20101214, end: 20101214
  12. NORVASC [Concomitant]
     Route: 048

REACTIONS (2)
  - OEDEMA PERIPHERAL [None]
  - MYOCARDIAL INFARCTION [None]
